FAERS Safety Report 13712594 (Version 1)
Quarter: 2017Q3

REPORT INFORMATION
  Report Type: Spontaneous
  Country: US (occurrence: US)
  Receive Date: 20170703
  Receipt Date: 20170703
  Transmission Date: 20171127
  Serious: No
  Sender: FDA-Public Use
  Company Number: US-JNJFOC-20170610267

PATIENT
  Sex: Male

DRUGS (1)
  1. STELARA [Suspect]
     Active Substance: USTEKINUMAB
     Indication: CROHN^S DISEASE
     Dosage: INDUCTION INFUSION DOSE
     Route: 042
     Dates: start: 20170517, end: 20170517

REACTIONS (4)
  - Diarrhoea [Unknown]
  - Abdominal discomfort [Unknown]
  - Incontinence [Unknown]
  - Muscle spasms [Unknown]

NARRATIVE: CASE EVENT DATE: 2017
